FAERS Safety Report 25123363 (Version 1)
Quarter: 2025Q1

REPORT INFORMATION
  Report Type: Spontaneous
  Country: US (occurrence: US)
  Receive Date: 20250326
  Receipt Date: 20250326
  Transmission Date: 20250409
  Serious: No
  Sender: GRIFOLS
  Company Number: US-IGSA-BIG0032015

PATIENT
  Sex: Female
  Weight: 102.04 kg

DRUGS (19)
  1. PROLASTIN-C LIQUID [Suspect]
     Active Substance: .ALPHA.1-PROTEINASE INHIBITOR HUMAN
     Indication: Alpha-1 antitrypsin deficiency
     Dosage: 6180 MILLIGRAM, Q.WK.
     Route: 042
  2. EPINEPHRINE [Concomitant]
     Active Substance: EPINEPHRINE
  3. SODIUM CHLORIDE [Concomitant]
     Active Substance: SODIUM CHLORIDE
  4. ANASTROZOLE [Concomitant]
     Active Substance: ANASTROZOLE
     Route: 048
  5. ZINC [Concomitant]
     Active Substance: ZINC
     Route: 048
  6. LEVOTHYROXINE SODIUM [Concomitant]
     Active Substance: LEVOTHYROXINE SODIUM
     Route: 048
  7. VITAMINS [Concomitant]
     Active Substance: VITAMINS
  8. LOSARTAN AND HYDROCHLOROTHIAZIDE [Concomitant]
     Active Substance: HYDROCHLOROTHIAZIDE\LOSARTAN POTASSIUM
  9. CALCIUM CITRATE [Concomitant]
     Active Substance: CALCIUM CITRATE
     Route: 048
  10. CICLOPIROX [Concomitant]
     Active Substance: CICLOPIROX
  11. VITAMIN D3 [Concomitant]
     Active Substance: CHOLECALCIFEROL
     Route: 048
  12. TRIAMCINOLONE ACETONIDE [Concomitant]
     Active Substance: TRIAMCINOLONE ACETONIDE
  13. BREZTRI [Concomitant]
     Active Substance: BUDESONIDE\FORMOTEROL\GLYCOPYRROLATE
  14. ALPRAZOLAM [Concomitant]
     Active Substance: ALPRAZOLAM
  15. ELIQUIS [Concomitant]
     Active Substance: APIXABAN
     Route: 048
  16. LEVOCETIRIZINE DIHYDROCHLORIDE [Concomitant]
     Active Substance: LEVOCETIRIZINE DIHYDROCHLORIDE
  17. ALBUTEROL SULFATE [Concomitant]
     Active Substance: ALBUTEROL SULFATE
  18. FLUTICASONE PROPIONATE [Concomitant]
     Active Substance: FLUTICASONE PROPIONATE
  19. ALBUTEROL SULFATE [Concomitant]
     Active Substance: ALBUTEROL SULFATE

REACTIONS (1)
  - Sinusitis [Recovered/Resolved]
